FAERS Safety Report 19328204 (Version 8)
Quarter: 2023Q2

REPORT INFORMATION
  Report Type: Other
  Country: US (occurrence: None)
  Receive Date: 20210528
  Receipt Date: 20230419
  Transmission Date: 20230721
  Serious: Yes (Other)
  Sender: FDA-Public Use
  Company Number: US-ROCHE-2839076

PATIENT
  Age: 55 Year
  Sex: Female

DRUGS (9)
  1. ACTEMRA [Suspect]
     Active Substance: TOCILIZUMAB
     Indication: Rheumatoid arthritis
     Dosage: INJECT 162MG SUBCUTANEOUSLY EVERY WEEK
     Route: 058
  2. ACTEMRA [Suspect]
     Active Substance: TOCILIZUMAB
  3. ACTEMRA [Suspect]
     Active Substance: TOCILIZUMAB
  4. ACTEMRA [Suspect]
     Active Substance: TOCILIZUMAB
     Indication: Arthralgia
  5. ACTEMRA [Suspect]
     Active Substance: TOCILIZUMAB
  6. ACTEMRA [Suspect]
     Active Substance: TOCILIZUMAB
  7. ACTEMRA [Suspect]
     Active Substance: TOCILIZUMAB
     Indication: Arthralgia
  8. ACTEMRA [Suspect]
     Active Substance: TOCILIZUMAB
  9. ACTEMRA [Suspect]
     Active Substance: TOCILIZUMAB

REACTIONS (3)
  - Craniocerebral injury [Unknown]
  - Speech disorder [Unknown]
  - Memory impairment [Unknown]
